FAERS Safety Report 24449218 (Version 1)
Quarter: 2024Q4

REPORT INFORMATION
  Report Type: Spontaneous
  Country: SA (occurrence: SA)
  Receive Date: 20241017
  Receipt Date: 20241017
  Transmission Date: 20250115
  Serious: Yes (Hospitalization)
  Sender: AMGEN
  Company Number: SA-AMGEN-SAUSP2024202459

PATIENT
  Age: 58 Year
  Sex: Female

DRUGS (1)
  1. REPATHA [Suspect]
     Active Substance: EVOLOCUMAB
     Indication: Type IIa hyperlipidaemia
     Dosage: 140 MILLIGRAM, Q2WK
     Route: 058
     Dates: start: 202407, end: 202408

REACTIONS (3)
  - Renal pain [Recovered/Resolved]
  - Dehydration [Recovered/Resolved]
  - Cardiac operation [Recovered/Resolved]

NARRATIVE: CASE EVENT DATE: 20240801
